FAERS Safety Report 9517008 (Version 1)
Quarter: 2013Q1

REPORT INFORMATION
  Report Type: Spontaneous
  Country: US (occurrence: None)
  Receive Date: 20130305
  Receipt Date: 20130305
  Transmission Date: 20140127
  Serious: Yes (Hospitalization)
  Sender: FDA-Public Use
  Company Number: 163-21880-12011214

PATIENT
  Age: 80 Year
  Sex: Female

DRUGS (6)
  1. REVLIMID [Suspect]
     Indication: PLASMA CELL MYELOMA
     Route: 048
     Dates: start: 20110914
  2. WARFARIN SODIUM [Concomitant]
  3. SODIUM BICARBONATE [Concomitant]
  4. VITAMIN D3 (COLECALCIFEROL) [Concomitant]
  5. IRON [Concomitant]
  6. ASPIRIN (ACETYLSALICYLIC ACID) [Concomitant]

REACTIONS (3)
  - Dyspnoea [None]
  - Asthenia [None]
  - Red blood cell count decreased [None]
